FAERS Safety Report 4337907-X (Version None)
Quarter: 2004Q2

REPORT INFORMATION
  Report Type: 
  Country: None (occurrence: None)
  Receive Date: 20040407
  Receipt Date: 20040324
  Transmission Date: 20050107
  Serious: Yes (Hospitalization, Other)
  Sender: FDA-Public Use
  Company Number: NSADSS2001032917

PATIENT
  Age: 56 Year
  Sex: Female

DRUGS (7)
  1. REMICADE [Suspect]
     Indication: RHEUMATOID ARTHRITIS
     Dosage: INTRAVENOUS DRIP
     Route: 041
     Dates: start: 20000901, end: 20010827
  2. METHOTREXATE [Concomitant]
  3. PREDNISOLONE [Concomitant]
  4. WARFARIN SODIUM [Concomitant]
  5. NSAIDS (NSAID'S) [Concomitant]
  6. ACFOL (FOLIC ACID) [Concomitant]
  7. OMPERAZOLE (OMEPRAZOLE) [Concomitant]

REACTIONS (3)
  - ATRIAL FIBRILLATION [None]
  - PLEUROPERICARDITIS [None]
  - PULMONARY TUBERCULOSIS [None]
